FAERS Safety Report 17540906 (Version 1)
Quarter: 2020Q1

REPORT INFORMATION
  Report Type: Report from Study
  Country: None (occurrence: CA)
  Receive Date: 20200313
  Receipt Date: 20200313
  Transmission Date: 20200409
  Serious: Yes (Hospitalization, Other)
  Sender: FDA-Public Use
  Company Number: CA-HLS-202000140

PATIENT
  Age: 37 Year
  Sex: Female

DRUGS (10)
  1. CLOZARIL [Suspect]
     Active Substance: CLOZAPINE
     Dosage: PREVIOUSLY 300/350 MG, REDUCED TO 200 MG AT BEDTIME
     Route: 048
     Dates: start: 20040617
  2. VALPROIC ACID. [Concomitant]
     Active Substance: VALPROIC ACID
     Route: 065
  3. CEFTRIAXONE. [Concomitant]
     Active Substance: CEFTRIAXONE
     Route: 042
  4. DIVALPROEX [Concomitant]
     Active Substance: DIVALPROEX SODIUM
     Dosage: TID OR 500MG PO TID
     Route: 065
  5. METOPROLOL. [Concomitant]
     Active Substance: METOPROLOL
     Dosage: BID
     Route: 065
  6. PARIET [Concomitant]
     Active Substance: RABEPRAZOLE SODIUM
     Route: 065
  7. KCL [Concomitant]
     Active Substance: POTASSIUM CHLORIDE
     Dosage: BID
     Route: 065
  8. NYSTATIN. [Concomitant]
     Active Substance: NYSTATIN
     Dosage: QID
     Route: 065
  9. ESOMEPRAZOLE. [Concomitant]
     Active Substance: ESOMEPRAZOLE MAGNESIUM
     Dosage: OD
     Route: 065
  10. RAMIPRIL. [Concomitant]
     Active Substance: RAMIPRIL
     Route: 065

REACTIONS (22)
  - Drug screen [Unknown]
  - Blood pressure increased [Recovered/Resolved]
  - Rales [Unknown]
  - Somnolence [Unknown]
  - Blood glucose increased [Recovered/Resolved]
  - Blood lactic acid increased [Recovered/Resolved]
  - Dyspnoea [Unknown]
  - Pulseless electrical activity [Recovering/Resolving]
  - Blood pH decreased [Unknown]
  - Fibrin D dimer increased [Unknown]
  - Immature granulocyte count increased [Unknown]
  - Troponin increased [Unknown]
  - Atrial fibrillation [Recovered/Resolved]
  - Blood creatine phosphokinase increased [Unknown]
  - Ventricular extrasystoles [Recovered/Resolved]
  - Blood bicarbonate increased [Unknown]
  - Lung infiltration [Unknown]
  - Calcium ionised decreased [Unknown]
  - Cardiac arrest [Unknown]
  - Haemoglobin decreased [Unknown]
  - Haematocrit [Unknown]
  - Electrocardiogram QT prolonged [Recovered/Resolved]

NARRATIVE: CASE EVENT DATE: 20190221
